FAERS Safety Report 7202548-3 (Version None)
Quarter: 2010Q4

REPORT INFORMATION
  Report Type: 
  Country: None (occurrence: None)
  Receive Date: 20101229
  Receipt Date: 20101225
  Transmission Date: 20110411
  Serious: Yes (Death, Other)
  Sender: FDA-Public Use
  Company Number: PHHY2010JP88457

PATIENT
  Age: 67 Year
  Sex: Male

DRUGS (2)
  1. DEXAMETHASONE [Suspect]
     Dosage: 20 MG/DAY
  2. BORTEZOMIB [Suspect]
     Dosage: 1.3 MG/M^2

REACTIONS (10)
  - ALTERED STATE OF CONSCIOUSNESS [None]
  - BLOOD GLUCOSE INCREASED [None]
  - BLOOD POTASSIUM INCREASED [None]
  - BRONCHOPULMONARY ASPERGILLOSIS [None]
  - HYPERAMMONAEMIA [None]
  - HYPERCALCAEMIA [None]
  - PULMONARY MASS [None]
  - RENAL FAILURE ACUTE [None]
  - TUMOUR LYSIS SYNDROME [None]
  - ZYGOMYCOSIS [None]
